FAERS Safety Report 4642928-3 (Version None)
Quarter: 2005Q2

REPORT INFORMATION
  Report Type: 
  Country: None (occurrence: None)
  Receive Date: 20050421
  Receipt Date: 20050408
  Transmission Date: 20051028
  Serious: Yes (Hospitalization, Congenital Anomaly)
  Sender: FDA-Public Use
  Company Number: 05P-056-0296970-00

PATIENT
  Age: 1 Day
  Sex: Female

DRUGS (1)
  1. VALPROATE SODIUM [Suspect]

REACTIONS (31)
  - APHASIA [None]
  - ARACHNODACTYLY [None]
  - CAESAREAN SECTION [None]
  - CAMPTODACTYLY CONGENITAL [None]
  - CHROMOSOME ABNORMALITY [None]
  - CLEFT PALATE [None]
  - CONGENITAL ANOMALY OF INNER EAR [None]
  - CONGENITAL CENTRAL NERVOUS SYSTEM ANOMALY [None]
  - CONGENITAL EYE DISORDER [None]
  - CONVULSION NEONATAL [None]
  - DEAFNESS CONGENITAL [None]
  - DEVELOPMENTAL DELAY [None]
  - DRUG EXPOSURE DURING PREGNANCY [None]
  - EAR MALFORMATION [None]
  - ENCEPHALOPATHY NEONATAL [None]
  - FACIAL DYSMORPHISM [None]
  - FINGER DEFORMITY [None]
  - GROWTH OF EYELASHES [None]
  - HYPERTELORISM OF ORBIT [None]
  - HYPOTONIA NEONATAL [None]
  - LOW SET EARS [None]
  - MICROSTOMIA [None]
  - MULTIPLE CONGENITAL ABNORMALITIES [None]
  - NEONATAL TACHYPNOEA [None]
  - PHALANGEAL HYPOPLASIA [None]
  - POOR SUCKING REFLEX [None]
  - SEX DIFFERENTIATION ABNORMAL [None]
  - STRABISMUS [None]
  - TALIPES [None]
  - TEMPERATURE REGULATION DISORDER [None]
  - TRISOMY 21 [None]
